FAERS Safety Report 8537231-5 (Version None)
Quarter: 2012Q3

REPORT INFORMATION
  Report Type: 
  Country: None (occurrence: None)
  Receive Date: 20120725
  Receipt Date: 20120716
  Transmission Date: 20120928
  Serious: No
  Sender: FDA-Public Use
  Company Number: US-ELI_LILLY_AND_COMPANY-US201205001186

PATIENT
  Sex: Male
  Weight: 119.73 kg

DRUGS (15)
  1. HYDROCODONE [Concomitant]
     Dosage: UNK, PRN
  2. TRAMADOL                           /00599201/ [Concomitant]
     Dosage: UNK, BID
  3. VITAMIN D [Concomitant]
     Dosage: 50000 IU, WEEKLY (1/W)
  4. CITALOPRAM HYDROBROMIDE [Concomitant]
     Dosage: 20 MG, QD
  5. CELEXA [Concomitant]
     Dosage: UNK
  6. FORTEO [Suspect]
     Indication: OSTEOPOROSIS
     Dosage: 20 UG, QD
     Dates: start: 20110801
  7. GABAPENTIN [Concomitant]
     Dosage: 30 MG, TID
  8. ASCORBIC ACID [Concomitant]
     Dosage: UNK, BID
  9. VITAMIN D [Concomitant]
     Dosage: UNK, BID
  10. LISINOPRIL [Concomitant]
     Dosage: 10 MG, QD
     Route: 048
  11. STOOL SOFTENER [Concomitant]
     Dosage: UNK, PRN
  12. FLEXERIL [Concomitant]
     Dosage: UNK, PRN
  13. CALCIUM [Concomitant]
     Dosage: UNK
  14. CYCLOBENAZPRINE [Concomitant]
     Dosage: 10 MG, PRN
  15. BACTRIM [Concomitant]
     Dosage: UNK, BID

REACTIONS (3)
  - SEBORRHOEIC KERATOSIS [None]
  - BASAL CELL CARCINOMA [None]
  - FIBROUS HISTIOCYTOMA [None]
